FAERS Safety Report 22126065 (Version 1)
Quarter: 2023Q1

REPORT INFORMATION
  Report Type: Spontaneous
  Country: US (occurrence: US)
  Receive Date: 20230322
  Receipt Date: 20230322
  Transmission Date: 20230417
  Serious: No
  Sender: FDA-Public Use
  Company Number: US-ALLERGAN-2218419US

PATIENT
  Sex: Female

DRUGS (2)
  1. BIMATOPROST [Suspect]
     Active Substance: BIMATOPROST
     Indication: Growth of eyelashes
     Dosage: ONE DROP TO EACH LASH LINE AND EYEBROWS WITH INDIVIDUAL BRUSHES
  2. BIMATOPROST [Suspect]
     Active Substance: BIMATOPROST
     Indication: Madarosis

REACTIONS (1)
  - Off label use [Unknown]
